FAERS Safety Report 8624590-8 (Version None)
Quarter: 2012Q3

REPORT INFORMATION
  Report Type: 
  Country: None (occurrence: None)
  Receive Date: 20120810
  Receipt Date: 20120727
  Transmission Date: 20120928
  Serious: Yes (Other)
  Sender: FDA-Public Use
  Company Number: 1365012

PATIENT
  Age: 76 Year
  Sex: Male

DRUGS (8)
  1. BISOPROLOL FUMARATE [Concomitant]
  2. PRAVASTATIN [Concomitant]
  3. ( BOPIVACAINE ) [Concomitant]
  4. AMLODIPINE [Suspect]
  5. GENTAMICIN SULFATE [Suspect]
     Indication: SURGICAL PRECONDITIONING
     Dosage: 280 MG MILLIGRAM(S)  INTRAVENOUS (NOT OTHERWISE SPECIFIED)
     Route: 042
     Dates: start: 20120413, end: 20120413
  6. METRONIDAZOLE [Concomitant]
  7. PHENYLEPHRINE HYDROCHLORIDE [Concomitant]
  8. (DIAMORPHINE) [Concomitant]

REACTIONS (2)
  - NEPHROPATHY TOXIC [None]
  - RENAL FAILURE ACUTE [None]
